FAERS Safety Report 20679585 (Version 1)
Quarter: 2022Q2

REPORT INFORMATION
  Report Type: Spontaneous
  Country: US (occurrence: US)
  Receive Date: 20220406
  Receipt Date: 20220406
  Transmission Date: 20220720
  Serious: No
  Sender: FDA-Public Use
  Company Number: US-PFIZER INC-2021903476

PATIENT
  Age: 64 Year
  Sex: Male
  Weight: 185 kg

DRUGS (1)
  1. INLYTA [Suspect]
     Active Substance: AXITINIB
     Indication: Renal cell carcinoma
     Dosage: 5 MG, 1X/DAY(1 EVERY 12HOURS)
     Route: 048
     Dates: start: 20210531

REACTIONS (3)
  - Dysphonia [Unknown]
  - Decreased appetite [Unknown]
  - Cancer fatigue [Unknown]
